FAERS Safety Report 18025852 (Version 1)
Quarter: 2020Q3

REPORT INFORMATION
  Report Type: Spontaneous
  Country: US (occurrence: US)
  Receive Date: 20200715
  Receipt Date: 20200715
  Transmission Date: 20201103
  Serious: No
  Sender: FDA-Public Use
  Company Number: US-FERRINGPH-2020FE03230

PATIENT
  Age: 36 Year
  Sex: Male
  Weight: 120.64 kg

DRUGS (5)
  1. ARIMIDEX [Concomitant]
     Active Substance: ANASTROZOLE
     Indication: OESTROGEN THERAPY
     Dosage: 1 MG, TWICE WEEKLY
     Route: 065
  2. ZOMACTON [Suspect]
     Active Substance: SOMATROPIN
     Indication: MUSCLE BUILDING THERAPY
     Dosage: 3 IU, DAILY
     Route: 065
     Dates: start: 202004
  3. MODAFINIL. [Concomitant]
     Active Substance: MODAFINIL
     Indication: NARCOLEPSY
     Dosage: 100 MG, 2 TIMES DAILY
     Route: 065
  4. TESTOSTERONE. [Concomitant]
     Active Substance: TESTOSTERONE
     Indication: BLOOD TESTOSTERONE DECREASED
     Dosage: UNK, WEEKLY
     Route: 065
  5. HCG [Concomitant]
     Active Substance: GONADOTROPHIN, CHORIONIC
     Indication: BLOOD TESTOSTERONE
     Dosage: 150 IU, DAILY
     Route: 065

REACTIONS (3)
  - Drug ineffective [Not Recovered/Not Resolved]
  - Off label use [Not Recovered/Not Resolved]
  - Product use in unapproved indication [Not Recovered/Not Resolved]

NARRATIVE: CASE EVENT DATE: 202004
